FAERS Safety Report 25998852 (Version 3)
Quarter: 2025Q4

REPORT INFORMATION
  Report Type: Spontaneous
  Country: US (occurrence: US)
  Receive Date: 20251105
  Receipt Date: 20251128
  Transmission Date: 20260117
  Serious: No
  Sender: Haleon PLC
  Company Number: US-HALEON-2271374

PATIENT
  Sex: Female

DRUGS (1)
  1. NICOTINE POLACRILEX [Suspect]
     Active Substance: NICOTINE
     Indication: Product used for unknown indication

REACTIONS (4)
  - Abdominal discomfort [Recovered/Resolved]
  - Product taste abnormal [Unknown]
  - Product physical consistency issue [Unknown]
  - Drug effect less than expected [Unknown]
